FAERS Safety Report 8493036-5 (Version None)
Quarter: 2012Q2

REPORT INFORMATION
  Report Type: 
  Country: None (occurrence: None)
  Receive Date: 20120627
  Receipt Date: 20120615
  Transmission Date: 20120825
  Serious: Yes (Hospitalization, Disabling, Other)
  Sender: FDA-Public Use
  Company Number: DSA_57901_2012

PATIENT
  Sex: Female
  Weight: 74.8435 kg

DRUGS (4)
  1. MACUGEN [Suspect]
     Indication: DIABETIC RETINAL OEDEMA
     Dosage: (DF INTRAOCULAR) ; (DF INTRAOCULAR) ; (DF INTRAOCULAR)
     Route: 031
     Dates: start: 20080905, end: 20080905
  2. MACUGEN [Suspect]
     Indication: DIABETIC RETINAL OEDEMA
     Dosage: (DF INTRAOCULAR) ; (DF INTRAOCULAR) ; (DF INTRAOCULAR)
     Route: 031
     Dates: start: 20090622, end: 20090622
  3. MACUGEN [Suspect]
     Indication: DIABETIC RETINAL OEDEMA
     Dosage: (DF INTRAOCULAR) ; (DF INTRAOCULAR) ; (DF INTRAOCULAR)
     Route: 031
     Dates: start: 20090330, end: 20090330
  4. INSULIN [Concomitant]

REACTIONS (7)
  - TYPE 1 DIABETES MELLITUS [None]
  - OFF LABEL USE [None]
  - RENAL TRANSPLANT [None]
  - BLINDNESS UNILATERAL [None]
  - CEREBROVASCULAR ACCIDENT [None]
  - HYPERTENSION [None]
  - APHASIA [None]
